FAERS Safety Report 9114196 (Version 1)
Quarter: 2013Q1

REPORT INFORMATION
  Report Type: Spontaneous
  Country: US (occurrence: US)
  Receive Date: 20130129
  Receipt Date: 20130129
  Transmission Date: 20140127
  Serious: No
  Sender: FDA-Public Use
  Company Number: US-PFIZER INC-2013034703

PATIENT
  Age: 54 Year
  Sex: Female
  Weight: 122 kg

DRUGS (6)
  1. NEURONTIN [Suspect]
     Indication: HYPOAESTHESIA
     Dosage: 900 MG, 3X/DAY
     Dates: end: 201201
  2. NEURONTIN [Suspect]
     Indication: PAIN IN EXTREMITY
     Dosage: 600 MG, 3X/DAY
     Dates: start: 201201
  3. NEURONTIN [Suspect]
     Indication: PARAESTHESIA
  4. NEURONTIN [Suspect]
     Indication: PROPHYLAXIS
  5. GLUCOPHAGE [Concomitant]
     Indication: DIABETES MELLITUS
     Dosage: 500 MG, 2X/DAY
  6. GLIPIZIDE [Concomitant]
     Indication: DIABETES MELLITUS
     Dosage: 5 MG, UNK

REACTIONS (3)
  - Fatigue [Recovered/Resolved]
  - Sluggishness [Recovered/Resolved]
  - Feeling abnormal [Unknown]
